FAERS Safety Report 5744890-9 (Version None)
Quarter: 2008Q2

REPORT INFORMATION
  Report Type: 
  Country: None (occurrence: None)
  Receive Date: 20080516
  Receipt Date: 20080430
  Transmission Date: 20081010
  Serious: Yes (Other)
  Sender: FDA-Public Use
  Company Number: VNL_00969_2008

PATIENT
  Sex: Female

DRUGS (11)
  1. APO-GO (APO-GO AMPOULES  APOMORPHINE HYDROCHLORIDE) [Suspect]
     Indication: PARKINSON'S DISEASE
     Dosage: 5 MG PER HOUR FOR 11 MONTHS 20 HOURS DAILY SUBCUTANEOUS
     Route: 058
     Dates: start: 20061107, end: 20071001
  2. APO-GO (APO-GO PFS 5 MG/ML  IN PRE-FILLED SYRINGE [Suspect]
     Indication: PARKINSON'S DISEASE
     Dosage: 5 MG PER HOUR FOR 5 MONTHS 20 HOURS DAILY SUBCUTANEOUS)
     Route: 058
     Dates: start: 20071001, end: 20080319
  3. NEUPRO [Suspect]
     Indication: PARKINSON'S DISEASE
     Dosage: 6 MG TRANSDERMAL
     Route: 062
     Dates: start: 20070816, end: 20080319
  4. SINEMET CR [Concomitant]
  5. MADOPAR [Concomitant]
  6. COMTESS [Concomitant]
  7. GLUCOPHAGE [Concomitant]
  8. MOTILIUM [Concomitant]
  9. PRAVASTATIN [Concomitant]
  10. DIAMICRON [Concomitant]
  11. AMLODIPINE [Concomitant]

REACTIONS (6)
  - APATHY [None]
  - CELLULITIS [None]
  - INFLAMMATION [None]
  - INFUSION SITE ERYTHEMA [None]
  - INFUSION SITE MASS [None]
  - INFUSION SITE PAIN [None]
